FAERS Safety Report 22057842 (Version 1)
Quarter: 2023Q1

REPORT INFORMATION
  Report Type: Report from Study
  Country: US (occurrence: US)
  Receive Date: 20230303
  Receipt Date: 20230303
  Transmission Date: 20230418
  Serious: No
  Sender: FDA-Public Use
  Company Number: US-ORG100014127-2022001475

PATIENT
  Age: 65 Year
  Sex: Female

DRUGS (7)
  1. METOPIRONE [Suspect]
     Active Substance: METYRAPONE
     Indication: Adrenal gland cancer
     Dosage: 02 CAPSULES BID
     Dates: start: 20221104
  2. LYSODREN [Concomitant]
     Active Substance: MITOTANE
     Indication: Adrenal gland cancer
     Dosage: 03 TABLETS BID
     Dates: start: 20220923
  3. ELIQUIS [Concomitant]
     Active Substance: APIXABAN
     Indication: Product used for unknown indication
  4. METOPROLOL SUCCINATE [Concomitant]
     Active Substance: METOPROLOL SUCCINATE
     Indication: Product used for unknown indication
  5. POTASSIUM CHLORIDE [Concomitant]
     Active Substance: POTASSIUM CHLORIDE
     Indication: Product used for unknown indication
  6. SPIRONOLACTONE [Concomitant]
     Active Substance: SPIRONOLACTONE
     Indication: Product used for unknown indication
  7. METYROSINE [Concomitant]
     Active Substance: METYROSINE
     Indication: Product used for unknown indication

REACTIONS (1)
  - Off label use [Unknown]

NARRATIVE: CASE EVENT DATE: 20221104
